FAERS Safety Report 7018366-5 (Version None)
Quarter: 2010Q3

REPORT INFORMATION
  Report Type: 
  Country: None (occurrence: None)
  Receive Date: 20100928
  Receipt Date: 20100914
  Transmission Date: 20110219
  Serious: Yes (Other)
  Sender: FDA-Public Use
  Company Number: PHHY2010GB61336

PATIENT
  Age: 45 Year
  Sex: Female

DRUGS (2)
  1. PAMIDRONATE DISODIUM [Suspect]
     Indication: METASTATIC PAIN
     Dosage: UNK
  2. EXEMESTANE [Concomitant]
     Dosage: UNK

REACTIONS (14)
  - BENIGN INTRACRANIAL HYPERTENSION [None]
  - CONDITION AGGRAVATED [None]
  - CRANIAL NERVE DISORDER [None]
  - DIPLOPIA [None]
  - HEADACHE [None]
  - METASTATIC PAIN [None]
  - NAUSEA [None]
  - OCULAR HYPERAEMIA [None]
  - OPTIC ATROPHY [None]
  - OPTIC DISC HAEMORRHAGE [None]
  - PAPILLOEDEMA [None]
  - VISION BLURRED [None]
  - VISUAL FIELD DEFECT [None]
  - VISUAL IMPAIRMENT [None]
